FAERS Safety Report 5611351-7 (Version None)
Quarter: 2008Q1

REPORT INFORMATION
  Report Type: 
  Country: None (occurrence: None)
  Receive Date: 20080201
  Receipt Date: 20080123
  Transmission Date: 20080703
  Serious: Yes (Life-Threatening, Hospitalization, Other)
  Sender: FDA-Public Use
  Company Number: GB-PFIZER INC-2007102378

PATIENT
  Sex: Male
  Weight: 103 kg

DRUGS (4)
  1. LIPITOR [Suspect]
     Indication: TYPE 2 DIABETES MELLITUS
     Route: 048
  2. INSULIN [Concomitant]
  3. LERCANIDIPINE [Concomitant]
     Route: 048
  4. LOSARTAN POTASSIUM [Concomitant]

REACTIONS (7)
  - ARTERIAL DISORDER [None]
  - ASTHENIA [None]
  - CAROTID ARTERY STENOSIS [None]
  - DEPRESSION [None]
  - INFARCTION [None]
  - MUSCULAR WEAKNESS [None]
  - TRANSIENT ISCHAEMIC ATTACK [None]
